FAERS Safety Report 7956594-2 (Version None)
Quarter: 2011Q4

REPORT INFORMATION
  Report Type: 
  Country: None (occurrence: None)
  Receive Date: 20111205
  Receipt Date: 20111128
  Transmission Date: 20120403
  Serious: Yes (Other)
  Sender: FDA-Public Use
  Company Number: PHEH2011US010312

PATIENT
  Sex: Female

DRUGS (1)
  1. AREDIA [Suspect]
     Indication: NEOPLASM MALIGNANT

REACTIONS (3)
  - VENTRICULAR HYPERTROPHY [None]
  - AORTIC ARTERIOSCLEROSIS [None]
  - PERICARDIAL EFFUSION [None]
